FAERS Safety Report 11460315 (Version 2)
Quarter: 2015Q3

REPORT INFORMATION
  Report Type: Report from Study
  Country: DE (occurrence: NL)
  Receive Date: 20150904
  Receipt Date: 20150909
  Transmission Date: 20151125
  Serious: Yes (Death)
  Sender: FDA-Public Use
  Company Number: DE-ACTELION-A-US2015-123618

PATIENT
  Age: 68 Year
  Sex: Female

DRUGS (1)
  1. VENTAVIS [Suspect]
     Active Substance: ILOPROST
     Indication: PRODUCT USED FOR UNKNOWN INDICATION
     Route: 055

REACTIONS (2)
  - Respiratory failure [Fatal]
  - Fluid overload [Fatal]

NARRATIVE: CASE EVENT DATE: 20150811
